FAERS Safety Report 5858927-X (Version None)
Quarter: 2008Q3

REPORT INFORMATION
  Report Type: 
  Country: None (occurrence: None)
  Receive Date: 20080825
  Receipt Date: 20080812
  Transmission Date: 20090109
  Serious: Yes (Hospitalization)
  Sender: FDA-Public Use
  Company Number: 2008AL006052

PATIENT
  Age: 66 Year
  Sex: Female
  Weight: 81.1939 kg

DRUGS (1)
  1. DIGOXIN [Suspect]
     Indication: CARDIAC DISORDER
     Dosage: 0.125MG, DAILY, PO
     Route: 048

REACTIONS (3)
  - DIZZINESS [None]
  - HEART RATE INCREASED [None]
  - MALAISE [None]
